FAERS Safety Report 6347478-4 (Version None)
Quarter: 2009Q3

REPORT INFORMATION
  Report Type: 
  Country: None (occurrence: None)
  Receive Date: 20090910
  Receipt Date: 20090903
  Transmission Date: 20100115
  Serious: Yes (Death, Hospitalization)
  Sender: FDA-Public Use
  Company Number: KR-ELI_LILLY_AND_COMPANY-KR200909001040

PATIENT
  Age: 71 Year
  Sex: Male

DRUGS (3)
  1. HUMALOG MIX 75/25 [Suspect]
     Dosage: 10 U MORNING, 8 U EVENING
     Route: 058
     Dates: start: 20090701, end: 20090801
  2. HUMALOG MIX 75/25 [Suspect]
     Dosage: 10 U, EACH MORNING
     Route: 058
     Dates: start: 20090801
  3. HUMALOG MIX 75/25 [Suspect]
     Dosage: 8 U, EACH EVENING
     Route: 058
     Dates: start: 20090801

REACTIONS (2)
  - CONDITION AGGRAVATED [None]
  - PANCREATIC CARCINOMA [None]
